FAERS Safety Report 8802016 (Version 1)
Quarter: 2012Q4

REPORT INFORMATION
  Report Type: 
  Country: US (occurrence: US)
  Receive Date: 20120921
  Receipt Date: 20120921
  Transmission Date: 20130627
  Serious: Yes (Other)
  Sender: FDA-Public Use
  Company Number: US-PFIZER INC-2012229719

PATIENT
  Age: 65 Year
  Sex: Male
  Weight: 97.5 kg

DRUGS (3)
  1. SUTENT [Suspect]
     Indication: METASTATIC RENAL CELL CARCINOMA
     Dosage: 25 mg, for the first 42 day cycle
     Dates: start: 20090901
  2. SUTENT [Suspect]
     Dosage: 37.5 mg, UNK
  3. SUTENT [Suspect]
     Dosage: 50 mg, cycle 28/42

REACTIONS (12)
  - Arthropathy [Unknown]
  - Haemorrhage [Unknown]
  - Oral pain [Recovered/Resolved]
  - Diarrhoea [Recovered/Resolved]
  - Hair colour changes [Not Recovered/Not Resolved]
  - Palmar-plantar erythrodysaesthesia syndrome [Not Recovered/Not Resolved]
  - Arthritis [Unknown]
  - Thyroid disorder [Unknown]
  - Muscle spasms [Unknown]
  - Gingival recession [Unknown]
  - Bone disorder [Unknown]
  - Increased tendency to bruise [Unknown]
